FAERS Safety Report 14684223 (Version 1)
Quarter: 2018Q1

REPORT INFORMATION
  Report Type: Spontaneous
  Country: US (occurrence: US)
  Receive Date: 20180327
  Receipt Date: 20180327
  Transmission Date: 20180509
  Serious: No
  Sender: FDA-Public Use
  Company Number: US-009507513-1802USA013672

PATIENT
  Age: 38 Year
  Sex: Female
  Weight: 72.56 kg

DRUGS (1)
  1. NUVARING [Suspect]
     Active Substance: ETHINYL ESTRADIOL\ETONOGESTREL
     Indication: CONTRACEPTION
     Dosage: 1 RING, 3 WEEKS IN, 1 WEEK OUT
     Route: 067
     Dates: start: 201710

REACTIONS (6)
  - Device kink [Unknown]
  - Medical device site discomfort [Unknown]
  - No adverse event [Unknown]
  - Device difficult to use [Unknown]
  - Accidental underdose [Unknown]
  - Device expulsion [Unknown]

NARRATIVE: CASE EVENT DATE: 20180225
